FAERS Safety Report 7239305-8 (Version None)
Quarter: 2011Q1

REPORT INFORMATION
  Report Type: 
  Country: None (occurrence: None)
  Receive Date: 20110119
  Receipt Date: 20110119
  Transmission Date: 20110831
  Serious: Yes (Life-Threatening, Other)
  Sender: FDA-Public Use
  Company Number: None

PATIENT
  Age: 57 Year
  Sex: Male
  Weight: 108.8633 kg

DRUGS (1)
  1. JALYN [Suspect]
     Indication: PROSTATOMEGALY
     Dosage: 1 CAPSULE AT BEDTIME PO
     Route: 048
     Dates: start: 20110106, end: 20110109

REACTIONS (10)
  - PAIN [None]
  - APHASIA [None]
  - ORAL PAIN [None]
  - TONGUE COATED [None]
  - SYNCOPE [None]
  - DRUG HYPERSENSITIVITY [None]
  - GINGIVAL PAIN [None]
  - GLOSSODYNIA [None]
  - TONGUE BLISTERING [None]
  - APHAGIA [None]
